FAERS Safety Report 8242792-X (Version None)
Quarter: 2012Q1

REPORT INFORMATION
  Report Type: 
  Country: None (occurrence: None)
  Receive Date: 20120329
  Receipt Date: 20120327
  Transmission Date: 20120608
  Serious: Yes (Life-Threatening, Hospitalization)
  Sender: FDA-Public Use
  Company Number: JP-B.I. PHARMACEUTICALS,INC./RIDGEFIELD-2011-BP-26873NB

PATIENT
  Sex: Male
  Weight: 59.8 kg

DRUGS (5)
  1. LANSOPRAZOLE [Concomitant]
     Indication: GASTRIC ULCER
     Dosage: 15 MG
     Route: 048
  2. DEPAKENE [Concomitant]
     Indication: CONVULSION
     Dosage: 200 MG
     Route: 048
  3. PRADAXA [Suspect]
     Indication: CEREBRAL INFARCTION
     Dosage: 220 MG
     Route: 048
     Dates: start: 20110617, end: 20110812
  4. PRADAXA [Suspect]
     Indication: ATRIAL FIBRILLATION
     Dosage: 220 MG
     Route: 048
     Dates: start: 20110809, end: 20110812
  5. HEPARIN [Concomitant]
     Indication: BLADDER CANCER
     Route: 065
     Dates: start: 20110805

REACTIONS (3)
  - URINARY RETENTION [None]
  - HAEMATURIA [None]
  - URINARY BLADDER HAEMORRHAGE [None]
